FAERS Safety Report 23909848 (Version 1)
Quarter: 2024Q2

REPORT INFORMATION
  Report Type: Spontaneous
  Country: PT (occurrence: PT)
  Receive Date: 20240528
  Receipt Date: 20240528
  Transmission Date: 20240716
  Serious: Yes (Other)
  Sender: FDA-Public Use
  Company Number: None

PATIENT
  Age: 34 Year
  Sex: Female

DRUGS (2)
  1. PROPOFOL [Suspect]
     Active Substance: PROPOFOL
     Indication: General anaesthesia
     Dosage: FORM OF ADMIN-EMULSION FOR INJECTION OR INFUSION?SINGLE ADMINISTRATION?ROUTE OF ADMIN: INTRAVENOUS
     Dates: start: 20170422, end: 20170422
  2. SUFENTANIL CITRATE [Suspect]
     Active Substance: SUFENTANIL CITRATE
     Indication: General anaesthesia
     Dosage: FOA-SOLUTION FOR INJECTION OR INFUSION?SINGLE ADMINISTRATION?ROA: INTRAVENOUS
     Dates: start: 20170422, end: 20170422

REACTIONS (3)
  - Pruritus [Recovered/Resolved]
  - Rhinitis [Recovered/Resolved]
  - Asthma [Recovered/Resolved]

NARRATIVE: CASE EVENT DATE: 20170422
